FAERS Safety Report 12247406 (Version 1)
Quarter: 2016Q2

REPORT INFORMATION
  Report Type: Spontaneous
  Country: IT (occurrence: IT)
  Receive Date: 20160407
  Receipt Date: 20160407
  Transmission Date: 20160815
  Serious: Yes (Hospitalization)
  Sender: FDA-Public Use
  Company Number: IT-WATSON-2016-06632

PATIENT
  Age: 0 Day
  Sex: Male

DRUGS (2)
  1. LORAZEPAM (UNKNOWN) [Suspect]
     Active Substance: LORAZEPAM
     Indication: FOETAL EXPOSURE DURING PREGNANCY
     Dosage: UNK UNK, DAILY
     Route: 064
  2. ZOLOFT [Suspect]
     Active Substance: SERTRALINE HYDROCHLORIDE
     Indication: FOETAL EXPOSURE DURING PREGNANCY
     Dosage: UNK UNK, DAILY
     Route: 064

REACTIONS (2)
  - Foetal exposure during pregnancy [Recovered/Resolved]
  - Neonatal behavioural syndrome [Recovered/Resolved]

NARRATIVE: CASE EVENT DATE: 20110409
